FAERS Safety Report 5886161-6 (Version None)
Quarter: 2008Q3

REPORT INFORMATION
  Report Type: 
  Country: None (occurrence: None)
  Receive Date: 20080917
  Receipt Date: 20080912
  Transmission Date: 20090109
  Serious: Yes (Other)
  Sender: FDA-Public Use
  Company Number: FR-BAYER-200826199GPV

PATIENT
  Age: 63 Year
  Sex: Male

DRUGS (6)
  1. CIPROFLOXACIN HYDROCHLORIDE [Suspect]
     Indication: PULMONARY SEPSIS
     Dosage: UNIT DOSE: 200 MG
     Route: 042
     Dates: start: 20080721, end: 20080726
  2. AUGMENTIN '125' [Concomitant]
     Indication: DRUG USE FOR UNKNOWN INDICATION
     Route: 065
     Dates: start: 20080703, end: 20080721
  3. ROCEPHIN [Concomitant]
     Indication: PULMONARY SEPSIS
     Route: 065
     Dates: start: 20080721
  4. TRIFLUCAN [Concomitant]
     Indication: SYSTEMIC CANDIDA
     Route: 065
     Dates: start: 20080723
  5. FLAGYL [Concomitant]
     Indication: ENTEROCOCCAL INFECTION
     Route: 065
     Dates: start: 20080724
  6. VANCOMYCIN HYDROCHLORIDE [Concomitant]
     Indication: ENTEROCOCCAL INFECTION
     Route: 065
     Dates: start: 20080724

REACTIONS (1)
  - NEPHROGENIC DIABETES INSIPIDUS [None]
